FAERS Safety Report 19846499 (Version 1)
Quarter: 2021Q3

REPORT INFORMATION
  Report Type: Spontaneous
  Country: BR (occurrence: BR)
  Receive Date: 20210917
  Receipt Date: 20210917
  Transmission Date: 20211014
  Serious: Yes (Other)
  Sender: FDA-Public Use
  Company Number: BR-EMD SERONO-9264549

PATIENT
  Sex: Female

DRUGS (1)
  1. GLIFAGE [Suspect]
     Active Substance: METFORMIN HYDROCHLORIDE
     Indication: PRODUCT USED FOR UNKNOWN INDICATION
     Route: 048
     Dates: start: 20210808

REACTIONS (3)
  - Loss of consciousness [Unknown]
  - Decreased appetite [Unknown]
  - Syncope [Unknown]

NARRATIVE: CASE EVENT DATE: 20210808
